FAERS Safety Report 7399327-3 (Version None)
Quarter: 2011Q2

REPORT INFORMATION
  Report Type: 
  Country: None (occurrence: None)
  Receive Date: 20110407
  Receipt Date: 20110324
  Transmission Date: 20111010
  Serious: Yes (Hospitalization)
  Sender: FDA-Public Use
  Company Number: NL-MYLANLABS-2011S1006384

PATIENT
  Age: 71 Year
  Sex: Male

DRUGS (5)
  1. ERYTHROMYCIN [Suspect]
     Indication: PYREXIA
     Route: 048
  2. ESOMEPRAZOLE [Concomitant]
     Route: 065
  3. BORTEZOMIB [Interacting]
     Indication: MULTIPLE MYELOMA
     Dosage: ON DAYS 1, 4, 8 AND 11 OF FIRST COURSE
     Route: 065
  4. BORTEZOMIB [Interacting]
     Dosage: 50% DOSE; TEST DOSE PLUS 4 DOSES IN 11 DAY COURSE SCHEDULED
     Route: 065
  5. PARACETAMOL [Concomitant]
     Route: 065

REACTIONS (3)
  - RENAL FAILURE [None]
  - DRUG INTERACTION [None]
  - TUBULOINTERSTITIAL NEPHRITIS [None]
